FAERS Safety Report 8008225-3 (Version None)
Quarter: 2011Q4

REPORT INFORMATION
  Report Type: 
  Country: None (occurrence: None)
  Receive Date: 20111227
  Receipt Date: 20111223
  Transmission Date: 20120403
  Serious: Yes (Death, Other)
  Sender: FDA-Public Use
  Company Number: DE-ROCHE-1010707

PATIENT
  Sex: Female

DRUGS (6)
  1. XELODA [Suspect]
     Indication: BREAST CANCER
     Route: 065
     Dates: start: 20110820
  2. METOCLOPRAMIDE [Concomitant]
     Dosage: UNIT DOSE : 30 DROPS, TOTAL DAILY DOSE: 3X30 DROPS
     Route: 048
  3. NOVALGIN [Concomitant]
     Dosage: UNIT DOSE : 30 DROPS, TOTAL DAILY DOSE: 4X30 DROPS
     Route: 048
  4. BISOPROLOL FUMARATE [Concomitant]
     Route: 048
  5. TORSEMIDE [Concomitant]
     Route: 048
  6. SPIRONOLACTONE [Concomitant]
     Route: 048

REACTIONS (3)
  - SEPSIS [None]
  - BICYTOPENIA [None]
  - DIARRHOEA [None]
